FAERS Safety Report 5611425-0 (Version None)
Quarter: 2008Q1

REPORT INFORMATION
  Report Type: 
  Country: None (occurrence: None)
  Receive Date: 20080201
  Receipt Date: 20080125
  Transmission Date: 20080703
  Serious: Yes (Other)
  Sender: FDA-Public Use
  Company Number: CA-PFIZER INC-2008008210

PATIENT
  Age: 55 Year
  Sex: Female

DRUGS (4)
  1. LIPITOR [Suspect]
     Route: 048
  2. LIPITOR [Suspect]
     Route: 048
  3. MONOCOR [Concomitant]
     Route: 048
  4. ACCUPRIL [Concomitant]
     Route: 048

REACTIONS (2)
  - ABDOMINAL PAIN UPPER [None]
  - HAEMATEMESIS [None]
